FAERS Safety Report 20378811 (Version 1)
Quarter: 2022Q1

REPORT INFORMATION
  Report Type: Spontaneous
  Country: US (occurrence: US)
  Receive Date: 20220126
  Receipt Date: 20220126
  Transmission Date: 20220423
  Serious: Yes (Other)
  Sender: FDA-Public Use
  Company Number: US-PFIZER INC-202101513683

PATIENT
  Age: 64 Year
  Sex: Female

DRUGS (4)
  1. XELJANZ [Suspect]
     Active Substance: TOFACITINIB CITRATE
     Indication: Colitis ulcerative
     Dosage: 10 MG, 2X/DAY
     Route: 048
     Dates: start: 20210907
  2. XELJANZ [Suspect]
     Active Substance: TOFACITINIB CITRATE
     Dosage: 5 MG, 2X/DAY
     Route: 048
     Dates: start: 20211207
  3. PREDNISONE [Concomitant]
     Active Substance: PREDNISONE
     Dosage: UNK (FROM 40 MG DAILY TO 5MG DAILY)
     Dates: start: 20211103
  4. PREDNISONE [Concomitant]
     Active Substance: PREDNISONE
     Dosage: 20 MG, DAILY

REACTIONS (3)
  - Haematochezia [Unknown]
  - Abnormal faeces [Recovering/Resolving]
  - Defaecation urgency [Recovering/Resolving]

NARRATIVE: CASE EVENT DATE: 20210101
